FAERS Safety Report 6333500-8 (Version None)
Quarter: 2009Q3

REPORT INFORMATION
  Report Type: 
  Country: None (occurrence: None)
  Receive Date: 20090828
  Receipt Date: 20090812
  Transmission Date: 20100115
  Serious: Yes (Other)
  Sender: FDA-Public Use
  Company Number: GB-ABBOTT-09P-167-0593775-00

PATIENT
  Age: 22 Year
  Sex: Female

DRUGS (2)
  1. ERYTHROMYCIN TABLETS BP [Suspect]
     Indication: INFECTED BITES
     Route: 048
     Dates: start: 20090728, end: 20090729
  2. MODAFINIL [Concomitant]
     Indication: DRUG USE FOR UNKNOWN INDICATION

REACTIONS (1)
  - MALAISE [None]
